FAERS Safety Report 19502749 (Version 2)
Quarter: 2021Q3

REPORT INFORMATION
  Report Type: Report from Study
  Country: DE (occurrence: DE)
  Receive Date: 20210707
  Receipt Date: 20210707
  Transmission Date: 20211014
  Serious: Yes (Death, Other)
  Sender: FDA-Public Use
  Company Number: DE-PFIZER INC-2021691566

PATIENT
  Sex: Female

DRUGS (5)
  1. CERNEVIT [Suspect]
     Active Substance: VITAMINS
     Indication: PARENTERAL NUTRITION
     Dosage: 750 MG, 1X/DAY
     Route: 042
     Dates: start: 20210417
  2. FINOMEL [Suspect]
     Active Substance: AMINO ACIDS\DEXTROSE\ELECTROLYTES NOS\SOYBEAN OIL
     Indication: PARENTERAL NUTRITION
     Dosage: 1085 ML, 1X/DAY
     Route: 042
     Dates: start: 20210417
  3. METOCLOPRAMIDE. [Suspect]
     Active Substance: METOCLOPRAMIDE
     Indication: NAUSEA
     Dosage: 20 MG, 1X/DAY
     Route: 042
     Dates: start: 20210430
  4. PANTOZOL [Suspect]
     Active Substance: PANTOPRAZOLE SODIUM
     Indication: ABDOMINAL PAIN
     Dosage: 80 MG, 1X/DAY
     Route: 042
     Dates: start: 20210430
  5. ADDEL TRACE [Suspect]
     Active Substance: ELECTROLYTES NOS\MINERALS
     Indication: PARENTERAL NUTRITION
     Dosage: 10 ML, 1X/DAY
     Route: 042
     Dates: start: 20210417

REACTIONS (3)
  - Death [Fatal]
  - Abdominal pain [Fatal]
  - Nausea [Fatal]

NARRATIVE: CASE EVENT DATE: 20210514
